FAERS Safety Report 18122605 (Version 1)
Quarter: 2020Q3

REPORT INFORMATION
  Report Type: Spontaneous
  Country: CN (occurrence: CN)
  Receive Date: 20200807
  Receipt Date: 20200807
  Transmission Date: 20201103
  Serious: Yes (Hospitalization, Other)
  Sender: FDA-Public Use
  Company Number: CN-JNJFOC-20200808113

PATIENT
  Age: 9 Month
  Sex: Female
  Weight: 8.1 kg

DRUGS (4)
  1. SULPERAZON [Suspect]
     Active Substance: CEFOPERAZONE SODIUM\SULBACTAM SODIUM
     Indication: URINARY TRACT INFECTION
     Dosage: 0.6 GRAM, 3X/DAY (TID), PUMP INJECTION
     Route: 065
     Dates: start: 20200720, end: 20200724
  2. GLUCOSE INJECTION [Concomitant]
     Active Substance: DEXTROSE
     Indication: URINARY TRACT INFECTION
     Dosage: 30 MILLILITER, 3X/DAY (TID),PUMP INJECTION
     Route: 065
     Dates: start: 20200720, end: 20200724
  3. CETIRIZINE HYDROCHLORIDE. [Suspect]
     Active Substance: CETIRIZINE HYDROCHLORIDE
     Indication: RASH
     Dosage: 2.5 MILLILITER, 2X/DAY (BID)?OFF LABEL USE FOR POPULATION.
     Route: 048
  4. DEXAMETHASONE SODIUM PHOSPHATE. [Concomitant]
     Active Substance: DEXAMETHASONE SODIUM PHOSPHATE
     Indication: RASH
     Dosage: 2 MILLIGRAM STAT
     Route: 030
     Dates: start: 20200724

REACTIONS (4)
  - Rash maculo-papular [Unknown]
  - Off label use [Unknown]
  - Drug eruption [Unknown]
  - Pruritus [Unknown]

NARRATIVE: CASE EVENT DATE: 20200724
